FAERS Safety Report 25894334 (Version 1)
Quarter: 2025Q4

REPORT INFORMATION
  Report Type: Spontaneous
  Country: US (occurrence: US)
  Receive Date: 20251008
  Receipt Date: 20251008
  Transmission Date: 20260117
  Serious: No
  Sender: ACADIA PHARMACEUTICALS
  Company Number: US-ACADIA PHARMACEUTICALS INC.-ACA-2025-TRF-010724

PATIENT

DRUGS (17)
  1. DAYBUE [Suspect]
     Active Substance: TROFINETIDE
     Indication: Rett syndrome
     Dosage: 50 MILLILITER
     Dates: start: 20230503
  2. DAYBUE [Suspect]
     Active Substance: TROFINETIDE
     Dosage: 30 MILLILITER
     Dates: end: 20240822
  3. BETAMETHASONE\CLOTRIMAZOLE [Concomitant]
     Active Substance: BETAMETHASONE\CLOTRIMAZOLE
  4. BACLOFEN [Concomitant]
     Active Substance: BACLOFEN
  5. VITAMIN D3 [Concomitant]
     Active Substance: CHOLECALCIFEROL
  6. CLONAZEPAM [Concomitant]
     Active Substance: CLONAZEPAM
  7. TRILEPTAL [Concomitant]
     Active Substance: OXCARBAZEPINE
  8. TRANSDERM SCOP [Concomitant]
     Active Substance: SCOPOLAMINE
  9. BACTROBAN [Concomitant]
     Active Substance: MUPIROCIN CALCIUM
  10. NAPROSYN [Concomitant]
     Active Substance: NAPROXEN
  11. NEXIUM I.V. [Concomitant]
     Active Substance: ESOMEPRAZOLE SODIUM
  12. PEPCID [Concomitant]
     Active Substance: FAMOTIDINE
  13. ALBUTEROL [Concomitant]
     Active Substance: ALBUTEROL
  14. GLYCOLAX [Concomitant]
     Active Substance: POLYETHYLENE GLYCOL 3350
  15. MIRALAX [Concomitant]
     Active Substance: POLYETHYLENE GLYCOL 3350
  16. TYLENOL [Concomitant]
     Active Substance: ACETAMINOPHEN
  17. VITAMIN C [Concomitant]
     Active Substance: ASCORBIC ACID

REACTIONS (1)
  - Irritability [Not Recovered/Not Resolved]
